FAERS Safety Report 18846007 (Version 1)
Quarter: 2021Q1

REPORT INFORMATION
  Report Type: Spontaneous
  Country: US (occurrence: US)
  Receive Date: 20210204
  Receipt Date: 20210204
  Transmission Date: 20210419
  Serious: No
  Sender: FDA-Public Use
  Company Number: US-PFIZER INC-2020045676

PATIENT
  Age: 50 Year
  Sex: Female

DRUGS (1)
  1. PRISTIQ EXTENDED?RELEASE [Suspect]
     Active Substance: DESVENLAFAXINE SUCCINATE
     Dosage: UNK

REACTIONS (7)
  - Depressed mood [Unknown]
  - Hypertension [Unknown]
  - Tremor [Unknown]
  - Panic reaction [Unknown]
  - Crying [Unknown]
  - Stress [Unknown]
  - Headache [Unknown]
